FAERS Safety Report 4318961-8 (Version None)
Quarter: 2004Q1

REPORT INFORMATION
  Report Type: 
  Country: None (occurrence: None)
  Receive Date: 20040316
  Receipt Date: 20040226
  Transmission Date: 20041129
  Serious: No
  Sender: FDA-Public Use
  Company Number: F04200400050

PATIENT
  Age: 73 Year
  Sex: Male

DRUGS (6)
  1. UROXATRAL [Suspect]
     Indication: BENIGN PROSTATIC HYPERPLASIA
     Dosage: 10 MG OD, ORAL
     Route: 048
     Dates: start: 20031112, end: 20031124
  2. UROXATRAL [Suspect]
     Indication: NOCTURIA
     Dosage: 10 MG OD, ORAL
     Route: 048
     Dates: start: 20031112, end: 20031124
  3. ENALAPRIL MALEATE [Concomitant]
  4. ASS 100 (ACETYLSALICYLIC ACID) [Concomitant]
  5. ALLOPURINOL [Concomitant]
  6. SORTIS (ATORVASTATIN CALCIUM) [Concomitant]

REACTIONS (1)
  - SINUS BRADYCARDIA [None]
